FAERS Safety Report 17082740 (Version 1)
Quarter: 2019Q4

REPORT INFORMATION
  Report Type: Spontaneous
  Country: US (occurrence: US)
  Receive Date: 20191127
  Receipt Date: 20191127
  Transmission Date: 20200122
  Serious: Yes (Hospitalization)
  Sender: FDA-Public Use
  Company Number: US-PERRIGO-19US014092

PATIENT
  Age: 28 Year
  Sex: Male

DRUGS (2)
  1. AMITRIPTYLINE [Concomitant]
     Active Substance: AMITRIPTYLINE
     Indication: DEPRESSION
     Dosage: 150 TO 200 MG, QD
     Route: 048
  2. LOPERAMIDE HYDROCHLORIDE. [Suspect]
     Active Substance: LOPERAMIDE HYDROCHLORIDE
     Indication: DIARRHOEA
     Dosage: 120 MG, QD
     Route: 048

REACTIONS (4)
  - Torsade de pointes [Recovered/Resolved]
  - Bradycardia [Recovered/Resolved]
  - Drug abuse [Recovered/Resolved]
  - Ventricular tachycardia [Recovered/Resolved]
